FAERS Safety Report 14863102 (Version 3)
Quarter: 2023Q1

REPORT INFORMATION
  Report Type: Other
  Country: JP (occurrence: JP)
  Receive Date: 20180508
  Receipt Date: 20230320
  Transmission Date: 20230417
  Serious: Yes (Hospitalization)
  Sender: FDA-Public Use
  Company Number: JP-CHUGAI-A2018016525ROCHE

PATIENT
  Age: 77 Year
  Sex: Male
  Weight: 46 kg

DRUGS (5)
  1. AVASTIN [Suspect]
     Active Substance: BEVACIZUMAB
     Indication: Rectal cancer
     Dosage: 5 MILLIGRAM/KILOGRAM, SINGLE
     Route: 041
     Dates: start: 20180305, end: 20180305
  2. OXALIPLATIN [Suspect]
     Active Substance: OXALIPLATIN
     Indication: Rectal cancer
     Route: 041
     Dates: start: 20180305, end: 20180305
  3. FLUOROURACIL [Suspect]
     Active Substance: FLUOROURACIL
     Indication: Rectal cancer
     Route: 040
     Dates: start: 20180305, end: 20180305
  4. FLUOROURACIL [Suspect]
     Active Substance: FLUOROURACIL
     Route: 041
     Dates: start: 20180305, end: 20180307
  5. LEVOLEUCOVORIN CALCIUM [Concomitant]
     Active Substance: LEVOLEUCOVORIN CALCIUM
     Indication: Rectal cancer
     Dosage: UNK, SINGLE
     Route: 041
     Dates: start: 20180305, end: 20180305

REACTIONS (4)
  - Tumour perforation [Recovered/Resolved]
  - Fournier^s gangrene [Recovered/Resolved]
  - Necrotising fasciitis [Recovered/Resolved]
  - Off label use [Unknown]

NARRATIVE: CASE EVENT DATE: 20180326
